FAERS Safety Report 10309232 (Version 1)
Quarter: 2014Q3

REPORT INFORMATION
  Report Type: Report from Study
  Country: US (occurrence: US)
  Receive Date: 20140716
  Receipt Date: 20140716
  Transmission Date: 20150326
  Serious: Yes (Other)
  Sender: FDA-Public Use
  Company Number: US-GILEAD-2014-0108837

PATIENT
  Sex: Male

DRUGS (1)
  1. RANOLAZINE [Suspect]
     Active Substance: RANOLAZINE
     Indication: ANGINA PECTORIS
     Route: 065

REACTIONS (5)
  - Rib fracture [Unknown]
  - Dementia Alzheimer^s type [Unknown]
  - Cardiac operation [Unknown]
  - Parkinson^s disease [Unknown]
  - Concussion [Unknown]
